FAERS Safety Report 8578192-2 (Version None)
Quarter: 2012Q3

REPORT INFORMATION
  Report Type: 
  Country: None (occurrence: None)
  Receive Date: 20120808
  Receipt Date: 20120806
  Transmission Date: 20120928
  Serious: No
  Sender: FDA-Public Use
  Company Number: US-PFIZER INC-2012191768

PATIENT
  Age: 69 Year
  Sex: Female
  Weight: 58.957 kg

DRUGS (8)
  1. SPIRIVA [Concomitant]
     Indication: DYSPNOEA
     Dosage: UNK
  2. PRISTIQ [Suspect]
     Indication: DEPRESSION
     Dosage: 50 MG, DAILY
  3. PREDNISONE [Suspect]
     Dosage: UNK
  4. NORVASC [Concomitant]
     Indication: HYPERTENSION
     Dosage: 20 MG, DAILY
  5. VITAMIN D [Concomitant]
     Dosage: UNK
  6. PREDNISONE [Suspect]
     Indication: CHRONIC OBSTRUCTIVE PULMONARY DISEASE
     Dosage: 40 MG, 3X/DAY
  7. SYMBICORT [Concomitant]
     Indication: DYSPNOEA
     Dosage: UNK
  8. LOSARTAN [Concomitant]
     Indication: HYPERTENSION
     Dosage: 10 MG, DAILY

REACTIONS (1)
  - WEIGHT INCREASED [None]
